FAERS Safety Report 25805577 (Version 1)
Quarter: 2025Q3

REPORT INFORMATION
  Report Type: Spontaneous
  Country: CN (occurrence: CN)
  Receive Date: 20250916
  Receipt Date: 20250916
  Transmission Date: 20251020
  Serious: Yes (Hospitalization)
  Sender: ABBVIE
  Company Number: CN-ABBVIE-6455689

PATIENT
  Age: 78 Year
  Sex: Male
  Weight: 72 kg

DRUGS (2)
  1. VENETOCLAX [Suspect]
     Active Substance: VENETOCLAX
     Indication: Acute myeloid leukaemia
     Route: 048
     Dates: start: 20250815, end: 20250823
  2. VENETOCLAX [Suspect]
     Active Substance: VENETOCLAX
     Indication: Acute myeloid leukaemia
     Route: 048
     Dates: start: 2025

REACTIONS (1)
  - Myelosuppression [Recovering/Resolving]

NARRATIVE: CASE EVENT DATE: 20250903
